FAERS Safety Report 7236803-8 (Version None)
Quarter: 2011Q1

REPORT INFORMATION
  Report Type: 
  Country: None (occurrence: None)
  Receive Date: 20110120
  Receipt Date: 20110106
  Transmission Date: 20110831
  Serious: Yes (Life-Threatening, Hospitalization)
  Sender: FDA-Public Use
  Company Number: JP-BAYER-201015544BYL

PATIENT
  Sex: Male
  Weight: 88 kg

DRUGS (9)
  1. MYSLEE [Concomitant]
     Dosage: UNK
     Route: 048
  2. DIGOXIN [Concomitant]
     Dosage: UNK
     Route: 048
  3. ASPIRIN [Suspect]
     Indication: CEREBRAL INFARCTION
     Dosage: SINCE 56 AGE
     Route: 048
  4. KETOPROFEN [Concomitant]
     Dosage: UNK
     Route: 048
  5. SELOKEN [Concomitant]
     Dosage: UNK
     Route: 048
  6. ALTAT [Concomitant]
  7. UNCODEABLE ^UNCLASSIFIABLE^ [Concomitant]
     Route: 048
  8. DEPAS [Concomitant]
     Route: 048
  9. CEROCRAL [Concomitant]
     Route: 048

REACTIONS (2)
  - COLONIC HAEMATOMA [None]
  - LARGE INTESTINE PERFORATION [None]
